FAERS Safety Report 4537680-6 (Version None)
Quarter: 2005Q1

REPORT INFORMATION
  Report Type: 
  Country: None (occurrence: None)
  Receive Date: 20041216
  Receipt Date: 20040917
  Transmission Date: 20050727
  Serious: Yes (Hospitalization, Disabling)
  Sender: FDA-Public Use
  Company Number: HQWYE123420SEP04

PATIENT
  Age: 52 Year
  Sex: Female
  Weight: 63.56 kg

DRUGS (6)
  1. EFFEXOR XR [Suspect]
     Indication: DEPRESSION
     Dosage: SEE IMAGE
     Route: 048
     Dates: end: 20040101
  2. EFFEXOR XR [Suspect]
     Indication: DEPRESSION
     Dosage: SEE IMAGE
     Route: 048
     Dates: start: 20040101
  3. EFFEXOR XR [Suspect]
     Indication: DEPRESSION
     Dosage: SEE IMAGE
     Route: 048
     Dates: start: 20040501
  4. ZESTORETIC [Concomitant]
  5. ACTIVELLA [Concomitant]
  6. ALCOHOL (ETHANOL) [Concomitant]

REACTIONS (1)
  - SUICIDE ATTEMPT [None]
